FAERS Safety Report 6466897-9 (Version None)
Quarter: 2009Q4

REPORT INFORMATION
  Report Type: 
  Country: None (occurrence: None)
  Receive Date: 20091202
  Receipt Date: 20091119
  Transmission Date: 20100525
  Serious: Yes (Disabling)
  Sender: FDA-Public Use
  Company Number: GB-JNJCH-2009030888

PATIENT
  Age: 67 Year
  Sex: Female

DRUGS (7)
  1. CETIRIZINE HYDROCHLORIDE [Suspect]
     Indication: ILL-DEFINED DISORDER
     Dosage: TEXT:UNKNOWN
     Route: 048
  2. INFLUENZA VIRUS VACCINE POLYVALENT [Suspect]
     Indication: PROPHYLAXIS
     Dosage: TEXT:UNKNOWN
     Route: 065
     Dates: start: 20091113, end: 20091113
  3. CITALOPRAM HYDROBROMIDE [Suspect]
     Indication: AGITATED DEPRESSION
     Dosage: TEXT:UNKNOWN
     Route: 048
  4. OMEPRAZOLE [Suspect]
     Indication: GASTROINTESTINAL HAEMORRHAGE
     Dosage: TEXT:UNKNOWN
     Route: 048
  5. RAMIPRIL [Suspect]
     Indication: HYPERTENSION
     Dosage: TEXT:UNKNOWN
     Route: 048
  6. SIMVASTATIN [Concomitant]
     Indication: DRUG USE FOR UNKNOWN INDICATION
     Dosage: TEXT:UNKNOWN
     Route: 065
  7. INFLUENZA VIRUS VACCINE [Concomitant]
     Indication: DRUG USE FOR UNKNOWN INDICATION
     Dosage: TEXT:UNKNOWN
     Route: 065

REACTIONS (2)
  - DIARRHOEA [None]
  - NAUSEA [None]
